FAERS Safety Report 9017909 (Version 3)
Quarter: 2013Q2

REPORT INFORMATION
  Report Type: Spontaneous
  Country: US (occurrence: US)
  Receive Date: 20130118
  Receipt Date: 20130425
  Transmission Date: 20140414
  Serious: No
  Sender: FDA-Public Use
  Company Number: US-BIOGENIDEC-2013BI004141

PATIENT
  Age: 53 Year
  Sex: Female

DRUGS (1)
  1. TYSABRI [Suspect]
     Indication: MULTIPLE SCLEROSIS
     Route: 042
     Dates: start: 20110304, end: 20121023

REACTIONS (10)
  - Biopsy breast [Recovered/Resolved]
  - Burning sensation [Recovered/Resolved]
  - Nuclear magnetic resonance imaging abnormal [Unknown]
  - Neoplasm [Unknown]
  - Drug dose omission [Recovered/Resolved]
  - Stress [Unknown]
  - Multiple sclerosis relapse [Not Recovered/Not Resolved]
  - Therapeutic procedure [Unknown]
  - Cyst [Unknown]
  - Pneumonia [Unknown]
